FAERS Safety Report 20774861 (Version 2)
Quarter: 2022Q2

REPORT INFORMATION
  Report Type: Spontaneous
  Country: JP (occurrence: JP)
  Receive Date: 20220502
  Receipt Date: 20220531
  Transmission Date: 20220721
  Serious: No
  Sender: FDA-Public Use
  Company Number: JP-PFIZER INC-202200631346

PATIENT
  Age: 93 Year
  Sex: Female
  Weight: 30.5 kg

DRUGS (9)
  1. PAXLOVID [Suspect]
     Active Substance: NIRMATRELVIR\RITONAVIR
     Indication: COVID-19 treatment
     Dosage: [PF-07321332 300 MG]/[RITONAVIR 100 MG]; 2X/DAY
     Route: 048
     Dates: start: 20220301, end: 20220301
  2. CELESTAMINE [Concomitant]
     Active Substance: BETAMETHASONE\DEXCHLORPHENIRAMINE MALEATE
     Dosage: 1 TABLET, 2X/DAY
     Route: 048
     Dates: start: 20220301
  3. HYDROXYZINE HYDROCHLORIDE [Concomitant]
     Active Substance: HYDROXYZINE HYDROCHLORIDE
     Dosage: 1 CAPSULE, 2X/DAY
     Route: 048
     Dates: start: 20220301
  4. SOTROVIMAB [Concomitant]
     Active Substance: SOTROVIMAB
     Indication: COVID-19
     Dosage: 500 MG, 1X/DAY
     Route: 042
     Dates: start: 20220301, end: 20220301
  5. VEKLURY [Concomitant]
     Active Substance: REMDESIVIR
     Indication: COVID-19
     Dosage: 200 MG, 1X/DAY
     Route: 042
     Dates: start: 20220302, end: 20220302
  6. VEKLURY [Concomitant]
     Active Substance: REMDESIVIR
     Dosage: 100 MG, 1X/DAY
     Route: 042
     Dates: start: 20220303, end: 20220306
  7. SOLITA-T1 [Concomitant]
     Dosage: 500 ML, 1X/DAY
     Route: 042
     Dates: start: 20220301, end: 20220314
  8. CYANOCOBALAMIN\PYRIDOXINE HYDROCHLORIDE\THIAMINE [Concomitant]
     Active Substance: CYANOCOBALAMIN\PYRIDOXINE HYDROCHLORIDE\THIAMINE
     Dosage: 1 VIAL, 1X/DAY
     Route: 042
     Dates: start: 20220301, end: 20220314
  9. POTASSIUM CHLORIDE\SODIUM CHLORIDE\SODIUM LACTATE [Concomitant]
     Active Substance: POTASSIUM CHLORIDE\SODIUM CHLORIDE\SODIUM LACTATE
     Dosage: 500 ML, 1X/DAY
     Route: 042
     Dates: start: 20220302, end: 20220312

REACTIONS (3)
  - Product use complaint [Unknown]
  - Product size issue [Unknown]
  - Vomiting [Unknown]

NARRATIVE: CASE EVENT DATE: 20220301
